FAERS Safety Report 4322405-X (Version None)
Quarter: 2004Q1

REPORT INFORMATION
  Report Type: 
  Country: None (occurrence: None)
  Receive Date: 20040323
  Receipt Date: 20040323
  Transmission Date: 20041129
  Serious: Yes (Hospitalization)
  Sender: FDA-Public Use
  Company Number: None

PATIENT
  Age: 47 Year
  Sex: Female
  Weight: 96.6162 kg

DRUGS (6)
  1. THALDOMID 50 MG CELGENE [Suspect]
     Indication: MULTIPLE MYELOMA
     Dosage: 200 MG QD ORAL
     Route: 048
     Dates: start: 20031122, end: 20040315
  2. PREDNISONE TAB [Suspect]
     Dosage: 50 MG QOD ORAL
     Route: 048
     Dates: start: 20031222, end: 20040315
  3. COUMADIN [Concomitant]
  4. ZOMETA [Concomitant]
  5. PEPCID [Concomitant]
  6. NEURTONIN [Concomitant]

REACTIONS (3)
  - LUNG INFILTRATION [None]
  - PYREXIA [None]
  - TACHYCARDIA [None]
